FAERS Safety Report 5207634-5 (Version None)
Quarter: 2007Q1

REPORT INFORMATION
  Report Type: 
  Country: None (occurrence: None)
  Receive Date: 20070112
  Receipt Date: 20070103
  Transmission Date: 20070707
  Serious: Yes (Other)
  Sender: FDA-Public Use
  Company Number: US-PFIZER INC-2006112063

PATIENT
  Sex: Male
  Weight: 78 kg

DRUGS (9)
  1. SUTENT [Suspect]
     Indication: RENAL CELL CARCINOMA STAGE UNSPECIFIED
     Route: 048
     Dates: start: 20060815, end: 20060830
  2. BETASERON [Concomitant]
  3. VYTORIN [Concomitant]
  4. XANAX [Concomitant]
  5. CELEXA [Concomitant]
  6. BENICAR [Concomitant]
  7. ZOCOR [Concomitant]
  8. PRILOSEC [Concomitant]
  9. TAMSULOSIN HCL [Concomitant]

REACTIONS (6)
  - ASTHENIA [None]
  - DYSPHONIA [None]
  - FATIGUE [None]
  - LIP DRY [None]
  - MALAISE [None]
  - ORAL PAIN [None]
